FAERS Safety Report 26100587 (Version 2)
Quarter: 2025Q4

REPORT INFORMATION
  Report Type: Spontaneous
  Country: US (occurrence: US)
  Receive Date: 20251128
  Receipt Date: 20251215
  Transmission Date: 20260118
  Serious: Yes (Other)
  Sender: SANOFI AVENTIS
  Company Number: US-SA-2025SA356623

PATIENT
  Age: 59 Year
  Sex: Female
  Weight: 87.73 kg

DRUGS (16)
  1. NEXVIAZYME [Suspect]
     Active Substance: AVALGLUCOSIDASE ALFA-NGPT
     Indication: Glycogen storage disease type II
     Dosage: 1800 MG, QOW
     Route: 042
     Dates: start: 20250930, end: 2025
  2. STERILE WATER FOR INJECTION [Concomitant]
     Active Substance: WATER
  3. EPINEPHRINE [Concomitant]
     Active Substance: EPINEPHRINE
  4. AMLODIPINE BESYLATE [Concomitant]
     Active Substance: AMLODIPINE BESYLATE
  5. EZETIMIBE [Concomitant]
     Active Substance: EZETIMIBE
  6. BUPROPION [Concomitant]
     Active Substance: BUPROPION
  7. LISINOPRIL [Concomitant]
     Active Substance: LISINOPRIL
  8. VITAMIN D3 [Concomitant]
     Active Substance: CHOLECALCIFEROL
  9. FLONASE ALLERGY RELIEF [Concomitant]
     Active Substance: FLUTICASONE PROPIONATE
  10. LEVOTHYROXINE SODIUM [Concomitant]
     Active Substance: LEVOTHYROXINE SODIUM
  11. CITALOPRAM HYDROBROMIDE [Concomitant]
     Active Substance: CITALOPRAM HYDROBROMIDE
  12. FENOFIBRATE [Concomitant]
     Active Substance: FENOFIBRATE
  13. DEXTROSE [Concomitant]
     Active Substance: DEXTROSE MONOHYDRATE
  14. DIPHENHYDRAMINE HYDROCHLORIDE [Concomitant]
     Active Substance: DIPHENHYDRAMINE HYDROCHLORIDE
  15. IBUPROFEN [Concomitant]
     Active Substance: IBUPROFEN
  16. SODIUM CHLORIDE [Concomitant]
     Active Substance: SODIUM CHLORIDE

REACTIONS (6)
  - Cholecystectomy [Unknown]
  - Nasopharyngitis [Unknown]
  - Sinus congestion [Unknown]
  - Cough [Unknown]
  - Aphonia [Recovered/Resolved]
  - Malaise [Unknown]

NARRATIVE: CASE EVENT DATE: 20250101
